FAERS Safety Report 8839631 (Version 1)
Quarter: 2012Q4

REPORT INFORMATION
  Report Type: 
  Country: US (occurrence: US)
  Receive Date: 20121015
  Receipt Date: 20121015
  Transmission Date: 20130627
  Serious: Yes (Hospitalization)
  Sender: FDA-Public Use
  Company Number: US-MYLANLABS-2012S1020565

PATIENT
  Age: 59 Year
  Sex: Male

DRUGS (4)
  1. PREDNISONE [Suspect]
     Indication: IMMUNOSUPPRESSANT DRUG THERAPY
     Dosage: 5mg daily
     Route: 065
  2. TACROLIMUS [Suspect]
     Indication: IMMUNOSUPPRESSANT DRUG THERAPY
     Route: 065
  3. AZITHROMYCIN [Concomitant]
     Indication: MYCOBACTERIAL INFECTION
     Route: 065
  4. TIGECYCLINE [Concomitant]
     Indication: MYCOBACTERIAL INFECTION
     Route: 065

REACTIONS (3)
  - Mycobacterial infection [Recovering/Resolving]
  - Septic shock [Recovering/Resolving]
  - Skin lesion [Recovering/Resolving]
